FAERS Safety Report 25043474 (Version 1)
Quarter: 2025Q1

REPORT INFORMATION
  Report Type: Report from Study
  Country: CA (occurrence: CA)
  Receive Date: 20250306
  Receipt Date: 20250306
  Transmission Date: 20250409
  Serious: Yes (Other)
  Sender: ABBVIE
  Company Number: CA-ABBVIE-6158612

PATIENT
  Age: 66 Year
  Sex: Female

DRUGS (1)
  1. RINVOQ [Suspect]
     Active Substance: UPADACITINIB
     Indication: Crohn^s disease
     Dosage: 1 TABLET ONCE DAILY FOR 12 WEEKS?30 MG
     Route: 048
     Dates: start: 20250203

REACTIONS (2)
  - Gastrointestinal haemorrhage [Unknown]
  - Radiation proctitis [Unknown]

NARRATIVE: CASE EVENT DATE: 20250222
